FAERS Safety Report 7087774-9 (Version None)
Quarter: 2010Q4

REPORT INFORMATION
  Report Type: 
  Country: None (occurrence: None)
  Receive Date: 20101108
  Receipt Date: 20090721
  Transmission Date: 20110411
  Serious: Yes (Other)
  Sender: FDA-Public Use
  Company Number: US-ASTRAZENECA-2007UW14913

PATIENT
  Age: 17767 Day
  Sex: Female

DRUGS (15)
  1. SEROQUEL [Suspect]
     Indication: SLEEP DISORDER
     Dosage: 50 TO 100 MG
     Route: 048
     Dates: start: 20051021, end: 20060726
  2. SEROQUEL [Suspect]
     Route: 048
     Dates: start: 20051216, end: 20060720
  3. PROZAC [Concomitant]
     Dosage: 40 MG/20 MG TOTAL OF 60 PO EVERY AM
     Route: 048
     Dates: start: 20041206
  4. CYMBALTA [Concomitant]
     Dosage: 60 TO 240 MG
     Dates: start: 20051021
  5. KLONOPIN [Concomitant]
     Dosage: 0.25 TO 1.5 MG
     Route: 048
     Dates: start: 20051021
  6. ACIPHEX [Concomitant]
     Dosage: 20 MG A DAY
     Dates: start: 20051024
  7. TOPROL XL/TOPROL [Concomitant]
     Dates: start: 20051024
  8. LISINOPRIL [Concomitant]
     Dosage: IN EVENING
     Dates: start: 20051102
  9. VERAPAMIL [Concomitant]
     Indication: RAYNAUD'S PHENOMENON
     Dates: start: 20051215
  10. TRAZODONE [Concomitant]
     Dosage: 50 MG
     Dates: start: 20041206
  11. XANAX XR [Concomitant]
     Dosage: 0.5-1 MG
     Dates: start: 20050915
  12. LITHIUM [Concomitant]
     Dosage: 300-2400 MG
     Dates: start: 20070131
  13. TOPROL-XL [Concomitant]
     Dosage: 50 MG IN EVENING
     Dates: start: 20070131
  14. AMBIEN [Concomitant]
     Indication: INSOMNIA
     Route: 048
     Dates: start: 20070131
  15. ZYPREXA [Concomitant]
     Dates: start: 20070716

REACTIONS (2)
  - NEUROPATHY PERIPHERAL [None]
  - TYPE 2 DIABETES MELLITUS [None]
